FAERS Safety Report 19217571 (Version 1)
Quarter: 2021Q2

REPORT INFORMATION
  Report Type: Spontaneous
  Country: US (occurrence: US)
  Receive Date: 20210505
  Receipt Date: 20210505
  Transmission Date: 20210717
  Serious: Yes (Other)
  Sender: FDA-Public Use
  Company Number: None

PATIENT
  Age: 57 Year
  Sex: Female
  Weight: 92.25 kg

DRUGS (14)
  1. PREGABLIN [Concomitant]
     Active Substance: PREGABALIN
  2. ONE A DAY WOMEN^S 50 + [Concomitant]
  3. KRILL OIL [Concomitant]
     Active Substance: DIETARY SUPPLEMENT\KRILL OIL
  4. UNCARIA TOMENTOSA [Concomitant]
     Active Substance: HERBALS\UNCARIA TOMENTOSA WHOLE
  5. BUPROPION. [Concomitant]
     Active Substance: BUPROPION
  6. VITAMIN D3 [Concomitant]
     Active Substance: CHOLECALCIFEROL
  7. MILK THISTLE EXTRACT [Concomitant]
     Active Substance: DIETARY SUPPLEMENT\HERBALS\MILK THISTLE
  8. VYEPTI [Suspect]
     Active Substance: EPTINEZUMAB-JJMR
     Indication: MIGRAINE
     Dosage: ?          OTHER FREQUENCY:EVERY 3 MONTHS;OTHER ROUTE:INFUSION?
     Dates: start: 20210503, end: 20210503
  9. OXCARBAZEPINE. [Concomitant]
     Active Substance: OXCARBAZEPINE
  10. CURALIN [Concomitant]
  11. TOPIRAMATE. [Concomitant]
     Active Substance: TOPIRAMATE
  12. FAMOTIDINE. [Concomitant]
     Active Substance: FAMOTIDINE
  13. HYDROCODONE [Concomitant]
     Active Substance: HYDROCODONE
  14. VITAMIN B12 [Concomitant]
     Active Substance: CYANOCOBALAMIN

REACTIONS (3)
  - Infusion site rash [None]
  - Eye swelling [None]
  - Mydriasis [None]

NARRATIVE: CASE EVENT DATE: 20210504
